FAERS Safety Report 5270277-1 (Version None)
Quarter: 2007Q1

REPORT INFORMATION
  Report Type: 
  Country: None (occurrence: None)
  Receive Date: 20070320
  Receipt Date: 20070308
  Transmission Date: 20070707
  Serious: Yes (Death, Hospitalization)
  Sender: FDA-Public Use
  Company Number: BR-ELI_LILLY_AND_COMPANY-BR200611005464

PATIENT
  Age: 65 Year
  Sex: Female

DRUGS (7)
  1. GEMZAR [Suspect]
     Dosage: 1.6 G, OTHER
     Route: 042
     Dates: start: 20061108, end: 20061108
  2. GEMZAR [Suspect]
     Dosage: 1.6 G, OTHER
     Route: 042
     Dates: start: 20061108, end: 20061108
  3. TAXOL [Concomitant]
     Dosage: UNK, UNKNOWN
     Route: 065
  4. KYTRIL [Concomitant]
     Dosage: UNK, UNKNOWN
     Route: 065
  5. DEXAMETHASONE [Concomitant]
     Dosage: UNK, UNKNOWN
     Route: 065
  6. ANTAK [Concomitant]
     Dosage: UNK, UNKNOWN
     Route: 065
  7. DIPHENHYDRAMINE HYDROCHLORIDE [Concomitant]
     Dosage: UNK, UNKNOWN
     Route: 065

REACTIONS (2)
  - PANCYTOPENIA [None]
  - SEPTIC SHOCK [None]
